FAERS Safety Report 10610704 (Version 1)
Quarter: 2014Q4

REPORT INFORMATION
  Report Type: Spontaneous
  Country: US (occurrence: US)
  Receive Date: 20141126
  Receipt Date: 20141126
  Transmission Date: 20150529
  Serious: Yes (Life-Threatening, Hospitalization, Disabling)
  Sender: FDA-Public Use
  Company Number: US-BAYER-2014-171827

PATIENT
  Sex: Female

DRUGS (1)
  1. MIRENA [Suspect]
     Active Substance: LEVONORGESTREL
     Dosage: 20 MCG/24HR, CONT
     Route: 015
     Dates: end: 20131213

REACTIONS (9)
  - Complication of device removal [None]
  - Uterine perforation [None]
  - Device breakage [None]
  - Pelvic pain [None]
  - Injury [None]
  - Anhedonia [None]
  - Anxiety [None]
  - General physical health deterioration [None]
  - Balance disorder [None]

NARRATIVE: CASE EVENT DATE: 20131210
